FAERS Safety Report 6473501-2 (Version None)
Quarter: 2009Q4

REPORT INFORMATION
  Report Type: 
  Country: None (occurrence: None)
  Receive Date: 20091204
  Receipt Date: 20081030
  Transmission Date: 20100525
  Serious: Yes (Disabling)
  Sender: FDA-Public Use
  Company Number: US-ELI_LILLY_AND_COMPANY-US200810007299

PATIENT
  Sex: Female

DRUGS (25)
  1. CYMBALTA [Suspect]
     Indication: DEPRESSION
     Dosage: 30 MG, UNK
     Dates: start: 20050101
  2. CYMBALTA [Suspect]
     Dosage: 60 MG, UNK
     Dates: end: 20080817
  3. CYMBALTA [Suspect]
     Dosage: 90 MG, UNK
     Dates: start: 20080818, end: 20081019
  4. CYMBALTA [Suspect]
     Dosage: 120 MG, UNK
     Dates: start: 20081020
  5. ALLEGRA [Concomitant]
     Dosage: 180 MG, UNK
  6. SINGULAIR [Concomitant]
     Dosage: 10 MG, DAILY (1/D)
  7. PREMARIN [Concomitant]
     Dosage: 0.3 MG, UNK
  8. LEVOTHYROXINE SODIUM [Concomitant]
  9. ADOCOR [Concomitant]
     Dosage: 1040 MG, UNK
  10. DIAZEPAM [Concomitant]
     Dosage: 5 MG, UNK
  11. METHOCARBAMOL [Concomitant]
     Dosage: 75 MG, 2/D
  12. NEXIUM [Concomitant]
     Dosage: 40 MG, UNK
  13. FENTANYL [Concomitant]
     Dosage: 50 MG, OTHER
  14. OXYCODONE HCL [Concomitant]
     Dosage: 5 MG, AS NEEDED
  15. LIDODERM [Concomitant]
     Dosage: 5 %, UNK
  16. TRAZODONE HCL [Concomitant]
     Dosage: 300 MG, DAILY (1/D)
  17. METENIX 5 [Concomitant]
  18. MAGNESIUM OXIDE [Concomitant]
     Dosage: 400 MG, UNK
  19. ACTIQ [Concomitant]
     Indication: PAIN
     Dosage: 800 MG, UNK
  20. MAXALT [Concomitant]
     Indication: MIGRAINE
  21. PROMETHAZINE [Concomitant]
     Indication: NAUSEA
  22. FLONASE [Concomitant]
     Indication: HYPERSENSITIVITY
  23. MYCOLOG [Concomitant]
  24. EXCEDRIN (MIGRAINE) [Concomitant]
  25. MULTI-VITAMINS [Concomitant]

REACTIONS (8)
  - BACK PAIN [None]
  - CONDITION AGGRAVATED [None]
  - DRY MOUTH [None]
  - DYSARTHRIA [None]
  - GINGIVAL INFECTION [None]
  - GLOSSODYNIA [None]
  - OROPHARYNGEAL PLAQUE [None]
  - SWOLLEN TONGUE [None]
